FAERS Safety Report 23549248 (Version 1)
Quarter: 2024Q1

REPORT INFORMATION
  Report Type: Spontaneous
  Country: US (occurrence: US)
  Receive Date: 20240221
  Receipt Date: 20240221
  Transmission Date: 20240410
  Serious: No
  Sender: FDA-Public Use
  Company Number: US-PFIZER INC-202400046151

PATIENT
  Age: 54 Year
  Sex: Female

DRUGS (12)
  1. PAXLOVID [Suspect]
     Active Substance: NIRMATRELVIR\RITONAVIR
     Indication: COVID-19 treatment
     Dosage: UNK
     Dates: start: 20240206, end: 20240210
  2. LEVOTHYROXINE [Concomitant]
     Active Substance: LEVOTHYROXINE\LEVOTHYROXINE SODIUM
     Dosage: UNK
  3. DEXTROAMPHET SACCHARAT, AMPHET ASPARTATE, DEXTROAMPHET SULFATE AND AMP [Concomitant]
     Active Substance: AMPHETAMINE ASPARTATE\AMPHETAMINE ASPARTATE MONOHYDRATE\AMPHETAMINE SULFATE\DEXTROAMPHETAMINE SACCHA
     Dosage: ER
     Dates: start: 20240108, end: 20240206
  4. SPIRONOLACTONE [Concomitant]
     Active Substance: SPIRONOLACTONE
     Dosage: UNK
     Dates: start: 202312, end: 20240130
  5. HERBALS [Concomitant]
     Active Substance: HERBALS
     Dosage: UNK
     Dates: start: 202111
  6. ESTRODIM [Concomitant]
     Dosage: UNK
     Dates: start: 202307
  7. FEXOFENADINE [Concomitant]
     Active Substance: FEXOFENADINE HYDROCHLORIDE
     Dosage: UNK
  8. THORNE [Concomitant]
     Dosage: UNK
  9. NOW METHYL FOLATE [Concomitant]
     Dosage: UNK
  10. THYTROPHIN PMG [Concomitant]
     Dosage: UNK
  11. OKRA PEPSIN E3 [Concomitant]
     Dosage: UNK
  12. ARGINEX [Concomitant]
     Dosage: UNK

REACTIONS (2)
  - COVID-19 [Unknown]
  - Disease recurrence [Unknown]

NARRATIVE: CASE EVENT DATE: 20240215
